FAERS Safety Report 17988617 (Version 1)
Quarter: 2020Q3

REPORT INFORMATION
  Report Type: Spontaneous
  Country: US (occurrence: US)
  Receive Date: 20200707
  Receipt Date: 20200707
  Transmission Date: 20201103
  Serious: Yes (Hospitalization)
  Sender: FDA-Public Use
  Company Number: None

PATIENT
  Age: 84 Year
  Sex: Male
  Weight: 80.74 kg

DRUGS (1)
  1. IRINOTECAN (IRINOTECAN HCL 20MG/ML INJ, SOLN) [Suspect]
     Active Substance: IRINOTECAN
     Indication: METASTATIC NEOPLASM
     Route: 042
     Dates: start: 20200311, end: 20200331

REACTIONS (4)
  - Diarrhoea [None]
  - Vomiting [None]
  - Asthenia [None]
  - Nausea [None]

NARRATIVE: CASE EVENT DATE: 20200405
